FAERS Safety Report 21934945 (Version 1)
Quarter: 2023Q1

REPORT INFORMATION
  Report Type: Spontaneous
  Country: US (occurrence: US)
  Receive Date: 20230201
  Receipt Date: 20230201
  Transmission Date: 20230417
  Serious: Yes (Hospitalization)
  Sender: FDA-Public Use
  Company Number: US-STRIDES ARCOLAB LIMITED-2023SP001428

PATIENT
  Age: 44 Year
  Sex: Male

DRUGS (1)
  1. PREDNISOLONE [Suspect]
     Active Substance: PREDNISOLONE
     Indication: Dermatitis contact
     Dosage: UNK
     Route: 048

REACTIONS (5)
  - Uveitis [Recovered/Resolved]
  - Disease progression [Recovered/Resolved]
  - Retinopathy [Recovered/Resolved]
  - Eye infection syphilitic [Recovered/Resolved]
  - Neurosyphilis [Unknown]
